FAERS Safety Report 16935796 (Version 1)
Quarter: 2019Q4

REPORT INFORMATION
  Report Type: Spontaneous
  Country: US (occurrence: US)
  Receive Date: 20191018
  Receipt Date: 20191018
  Transmission Date: 20200122
  Serious: No
  Sender: FDA-Public Use
  Company Number: US-PERRIGO-18US013180

PATIENT
  Age: 81 Year
  Sex: Female
  Weight: 65.31 kg

DRUGS (7)
  1. ALLERGY MEDICATION [Concomitant]
     Active Substance: DIPHENHYDRAMINE HYDROCHLORIDE
     Indication: SUPPLEMENTATION THERAPY
     Dosage: UNK
     Route: 045
  2. BUDESONIDE. [Suspect]
     Active Substance: BUDESONIDE
     Dosage: 3 MG, QD
     Route: 048
     Dates: start: 20181026, end: 20181108
  3. BUDESONIDE. [Suspect]
     Active Substance: BUDESONIDE
     Indication: COLITIS
     Dosage: 3 MG, TID
     Route: 048
     Dates: start: 101805, end: 20181025
  4. VITAMINS WITH MINERALS [Concomitant]
     Active Substance: MINERALS\VITAMINS
     Indication: HYPERSENSITIVITY
     Dosage: UNK
     Route: 065
  5. BUDESONIDE. [Suspect]
     Active Substance: BUDESONIDE
     Dosage: 3 MG, QD
     Route: 048
     Dates: start: 20181026, end: 20181108
  6. BUDESONIDE. [Suspect]
     Active Substance: BUDESONIDE
     Indication: COLITIS
     Dosage: 3 MG, TID
     Route: 048
     Dates: start: 20181005, end: 20181025
  7. ASPIRIN                            /00002701/ [Concomitant]
     Active Substance: ASPIRIN
     Indication: PROPHYLAXIS
     Dosage: UNK
     Route: 065

REACTIONS (11)
  - Hair colour changes [Recovered/Resolved]
  - Chills [Recovered/Resolved]
  - Fatigue [Recovered/Resolved]
  - Ear pain [Recovered/Resolved]
  - Erythema [Unknown]
  - Burning sensation [Recovered/Resolved]
  - Alopecia [Recovered/Resolved]
  - Dry skin [Recovered/Resolved]
  - Headache [Recovered/Resolved]
  - Off label use [Recovered/Resolved]
  - Hot flush [Recovered/Resolved]

NARRATIVE: CASE EVENT DATE: 201810
